FAERS Safety Report 11860790 (Version 1)
Quarter: 2015Q4

REPORT INFORMATION
  Report Type: Spontaneous
  Country: LU (occurrence: LU)
  Receive Date: 20151222
  Receipt Date: 20151222
  Transmission Date: 20160305
  Serious: Yes (Disabling)
  Sender: FDA-Public Use
  Company Number: PHHY2015LU166969

PATIENT
  Age: 80 Year
  Sex: Female

DRUGS (1)
  1. TAFINLAR [Suspect]
     Active Substance: DABRAFENIB MESYLATE
     Indication: METASTATIC MALIGNANT MELANOMA
     Dosage: UNKNOWN DOSE DAILY
     Route: 065
     Dates: start: 201409

REACTIONS (1)
  - Neuropathy peripheral [Not Recovered/Not Resolved]
